FAERS Safety Report 7074044-8 (Version None)
Quarter: 2010Q4

REPORT INFORMATION
  Report Type: 
  Country: None (occurrence: None)
  Receive Date: 20101029
  Receipt Date: 20101026
  Transmission Date: 20110411
  Serious: Yes (Life-Threatening, Hospitalization)
  Sender: FDA-Public Use
  Company Number: FR-ROCHE-695726

PATIENT
  Sex: Female
  Weight: 81 kg

DRUGS (4)
  1. BEVACIZUMAB [Suspect]
     Dosage: FORM: INFUSION,  LAST DOSE PRIOR TO SAE: 25 MAR 2010
     Route: 042
     Dates: start: 20100304
  2. TAXOTERE [Suspect]
     Dosage: FORM: INFUSION; LAST DOSE PRIOR TO SAE: 25 MAR 2010
     Route: 042
     Dates: start: 20100304
  3. NOCTAMIDE [Concomitant]
     Dates: start: 19950301
  4. SOTALOL [Concomitant]
     Dates: start: 19950301

REACTIONS (4)
  - BACK PAIN [None]
  - DECREASED APPETITE [None]
  - GENERAL PHYSICAL HEALTH DETERIORATION [None]
  - NEUTROPENIA [None]
